FAERS Safety Report 16678631 (Version 1)
Quarter: 2019Q3

REPORT INFORMATION
  Report Type: Report from Study
  Country: IL (occurrence: IL)
  Receive Date: 20190807
  Receipt Date: 20190807
  Transmission Date: 20191004
  Serious: Yes (Hospitalization)
  Sender: FDA-Public Use
  Company Number: IL-BRISTOL-MYERS SQUIBB COMPANY-BMS-2019-076197

PATIENT
  Age: 67 Year
  Sex: Male

DRUGS (16)
  1. TRAZODIL [Concomitant]
     Indication: DEPRESSION
     Dosage: 100 MILLIGRAM
     Route: 048
  2. IPILIMUMAB [Suspect]
     Active Substance: IPILIMUMAB
     Indication: KAPOSI^S SARCOMA
     Dosage: 1 MILLIGRAM/KILOGRAM
     Route: 042
     Dates: start: 20181226
  3. CLOTRIMAZOLE;DEXAMETHASONE [Concomitant]
     Indication: RASH
     Dosage: 1 DOSAGE FORM, BID
     Route: 050
     Dates: start: 2016, end: 20190403
  4. LAXIN [Concomitant]
     Indication: CONSTIPATION
     Dosage: UNK MILLIGRAM, PRN
     Route: 048
     Dates: start: 20181120
  5. BURN CARE [Concomitant]
     Indication: RASH
     Dosage: 1 DOSAGE FORM, BID
     Route: 050
     Dates: start: 20190717
  6. LOPERAMIDE [Concomitant]
     Active Substance: LOPERAMIDE
     Indication: DIARRHOEA
     Dosage: 2 MILLIGRAM, PRN
     Route: 048
     Dates: start: 20181227, end: 20190318
  7. BROTIZOLAM [Concomitant]
     Active Substance: BROTIZOLAM
     Indication: INSOMNIA
     Dosage: 0.25 MILLIGRAM, QD
     Route: 048
     Dates: start: 2004
  8. PERCOCET [OXYCODONE HYDROCHLORIDE;OXYCODONE TEREPHTHALATE;PARACETAMOL] [Concomitant]
     Active Substance: ACETAMINOPHEN\OXYCODONE HYDROCHLORIDE\OXYCODONE TEREPHTHALATE
     Indication: PAIN
     Dosage: 0.5 MILLIGRAM, TID
     Route: 048
     Dates: start: 20181220, end: 20190116
  9. TARGIN [Concomitant]
     Active Substance: NALOXONE HYDROCHLORIDE\OXYCODONE HYDROCHLORIDE
     Indication: PAIN
     Dosage: 10 MILLIGRAM, TID
     Route: 048
     Dates: start: 20181223
  10. OPTALGIN [Concomitant]
     Active Substance: METAMIZOLE
     Indication: PAIN
     Dosage: 500 MILLIGRAM, PRN
     Route: 048
     Dates: start: 20190117
  11. OMNIC OCAS [Concomitant]
     Active Substance: TAMSULOSIN HYDROCHLORIDE
     Indication: BENIGN PROSTATIC HYPERPLASIA
     Dosage: 0.4 MILLIGRAM, QD
     Route: 048
     Dates: start: 201810
  12. DOXAZOSIN MESYLATE. [Concomitant]
     Active Substance: DOXAZOSIN MESYLATE
     Indication: DYSURIA
     Dosage: 4 MILLIGRAM, QD
     Route: 048
     Dates: start: 2003
  13. NIVOLUMAB [Suspect]
     Active Substance: NIVOLUMAB
     Indication: KAPOSI^S SARCOMA
     Dosage: 240 MILLIGRAM
     Route: 042
     Dates: start: 20181226
  14. BETAMETHASONE G [Concomitant]
     Indication: RASH
     Dosage: 1 DOSAGE FORM, QD
     Route: 050
     Dates: start: 2016
  15. LAMOTRIGINE. [Concomitant]
     Active Substance: LAMOTRIGINE
     Indication: PAIN
     Dosage: 25 MILLIGRAM, TID
     Route: 048
     Dates: start: 2004
  16. AQUA [BENZYLPENICILLIN] [Concomitant]
     Indication: RASH
     Dosage: 250 MILLILITER
     Route: 050
     Dates: start: 20190228

REACTIONS (4)
  - Rash [Unknown]
  - Asthenia [Unknown]
  - Urinary tract infection [Unknown]
  - Peripheral swelling [Unknown]

NARRATIVE: CASE EVENT DATE: 20190728
